FAERS Safety Report 9926918 (Version 1)
Quarter: 2014Q1

REPORT INFORMATION
  Report Type: Spontaneous
  Country: US (occurrence: US)
  Receive Date: 20140226
  Receipt Date: 20140226
  Transmission Date: 20141002
  Serious: No
  Sender: FDA-Public Use
  Company Number: US-AMGEN-USASP2013086758

PATIENT
  Age: 77 Year
  Sex: Female
  Weight: 87.98 kg

DRUGS (10)
  1. ENBREL [Suspect]
     Indication: PRODUCT USED FOR UNKNOWN INDICATION
     Dosage: 50 MG, QWK
     Route: 058
     Dates: start: 201206
  2. EYLEA [Concomitant]
     Dosage: UNK, 2/0.05 ML
  3. ATENOLOL [Concomitant]
     Dosage: 100 MG, UNK
  4. SYNTHROID [Concomitant]
     Dosage: 100 MUG, UNK
  5. ENALAPRIL [Concomitant]
     Dosage: 2.5 MG, UNK
  6. ADVIL                              /00109201/ [Concomitant]
     Dosage: 200 MG, UNK
  7. OCUVITE                            /01053801/ [Concomitant]
     Dosage: UNK
  8. VITAMIN B COMPLEX [Concomitant]
     Dosage: UNK
  9. CALCIUM [Concomitant]
     Dosage: UNK
  10. COLCRYS [Concomitant]
     Dosage: 0.6 MG, UNK

REACTIONS (7)
  - Drug ineffective [Unknown]
  - Pruritus [Unknown]
  - Spinal pain [Unknown]
  - Intervertebral disc degeneration [Unknown]
  - Mobility decreased [Unknown]
  - Balance disorder [Unknown]
  - Psoriasis [Unknown]
